FAERS Safety Report 12595753 (Version 1)
Quarter: 2016Q3

REPORT INFORMATION
  Report Type: Report from Study
  Country: US (occurrence: US)
  Receive Date: 20160726
  Receipt Date: 20160726
  Transmission Date: 20161109
  Serious: No
  Sender: FDA-Public Use
  Company Number: US-AMGEN-USASL2016007443

PATIENT
  Age: 64 Year
  Sex: Female

DRUGS (1)
  1. KYPROLIS [Suspect]
     Active Substance: CARFILZOMIB
     Indication: PLASMA CELL MYELOMA
     Dosage: UNK, TWO CONSECUTIVE DAYS A WEEK FOR 3 WEEKS
     Route: 065
     Dates: start: 201510, end: 201602

REACTIONS (6)
  - Peripheral swelling [Unknown]
  - Back pain [Unknown]
  - Pruritus [Unknown]
  - Rash [Unknown]
  - Malaise [Unknown]
  - Inappropriate schedule of drug administration [Unknown]

NARRATIVE: CASE EVENT DATE: 201511
